FAERS Safety Report 21266789 (Version 1)
Quarter: 2022Q3

REPORT INFORMATION
  Report Type: Spontaneous
  Country: BR (occurrence: None)
  Receive Date: 20220829
  Receipt Date: 20220829
  Transmission Date: 20221027
  Serious: Yes (Other)
  Sender: FDA-Public Use
  Company Number: BR-ROCHE-3169414

PATIENT
  Sex: Female
  Weight: 84 kg

DRUGS (1)
  1. CLONAZEPAM [Suspect]
     Active Substance: CLONAZEPAM
     Indication: Sleep disorder
     Route: 065

REACTIONS (19)
  - Deafness [Recovering/Resolving]
  - Rheumatoid arthritis [Not Recovered/Not Resolved]
  - Osteoarthritis [Not Recovered/Not Resolved]
  - Renal disorder [Recovering/Resolving]
  - Cystitis [Recovering/Resolving]
  - Hypoacusis [Recovering/Resolving]
  - Phlebitis [Recovering/Resolving]
  - Angiopathy [Recovering/Resolving]
  - Arthropathy [Recovering/Resolving]
  - Tooth extraction [Recovering/Resolving]
  - Weight decreased [Recovering/Resolving]
  - Blood cholesterol increased [Recovering/Resolving]
  - Urine odour abnormal [Unknown]
  - Toxicity to various agents [Unknown]
  - Depression [Not Recovered/Not Resolved]
  - Condition aggravated [Recovering/Resolving]
  - Hypertension [Not Recovered/Not Resolved]
  - Thyroid disorder [Not Recovered/Not Resolved]
  - Product use in unapproved indication [Unknown]
